FAERS Safety Report 7479044-1 (Version None)
Quarter: 2011Q2

REPORT INFORMATION
  Report Type: 
  Country: None (occurrence: None)
  Receive Date: 20110513
  Receipt Date: 20110503
  Transmission Date: 20111010
  Serious: Yes (Hospitalization, Other)
  Sender: FDA-Public Use
  Company Number: PHHY2011GB37053

PATIENT
  Age: 29 Year
  Sex: Male

DRUGS (16)
  1. SULFASALAZINE [Suspect]
     Dosage: 500 MG, UNK
  2. ACETAMINOPHEN AND CODEINE PHOSPHATE [Concomitant]
     Dosage: UNK UKN, UNK
  3. FEXOFENADINE [Concomitant]
     Dosage: 180 MG, QD
  4. ACETAMINOPHEN [Concomitant]
     Dosage: 500 MG, UNK
  5. FLOXACILLIN SODIUM [Suspect]
     Dosage: 500 MG, UNK
  6. METHOTREXATE [Suspect]
     Dosage: 2.5 MG, UNK
  7. BONIVA [Concomitant]
     Dosage: 70 MG, QW
  8. HUMIRA [Suspect]
     Dosage: UNK UKN, UNK
     Dates: start: 20110201
  9. ARCOXIA [Concomitant]
  10. OMEPRAZOLE [Concomitant]
     Dosage: 20 MG, QD
  11. SODIUM CROMOGLICATE [Concomitant]
     Dosage: FOUR TIMES A DAY
     Route: 047
  12. HUMIRA [Suspect]
     Indication: ANKYLOSING SPONDYLITIS
     Dosage: UNK UKN, UNK
     Dates: start: 20090101, end: 20100901
  13. METHOTREXATE [Suspect]
     Dosage: 2.5 MG, UNK
  14. DERMOL SOL [Concomitant]
     Dosage: UNK UKN, UNK
  15. ETORICOXIB [Concomitant]
     Dosage: 120 MG, BID
  16. AZATHIOPRINE [Suspect]
     Dosage: 10 MG, UNK

REACTIONS (9)
  - CROHN'S DISEASE [None]
  - IMPAIRED HEALING [None]
  - PAIN [None]
  - TENDERNESS [None]
  - DRUG HYPERSENSITIVITY [None]
  - DERMATITIS [None]
  - ECZEMA [None]
  - LOCALISED INFECTION [None]
  - PURULENT DISCHARGE [None]
